FAERS Safety Report 5281924-2 (Version None)
Quarter: 2007Q1

REPORT INFORMATION
  Report Type: 
  Country: None (occurrence: None)
  Receive Date: 20061218
  Receipt Date: 20051219
  Transmission Date: 20070707
  Serious: Yes (Other)
  Sender: FDA-Public Use
  Company Number: PI2005-189

PATIENT
  Age: 70 Year
  Sex: Male
  Weight: 74.8435 kg

DRUGS (4)
  1. CHLORAPREP ONE-STEP FREPP [Suspect]
     Indication: PREOPERATIVE CARE
     Dosage: 3-ML, ONCE, TOPICAL
     Route: 061
  2. DAPTOMYCIN [Concomitant]
  3. ALICAN [Concomitant]
  4. VITAMINS [Concomitant]

REACTIONS (1)
  - SKIN IRRITATION [None]
